FAERS Safety Report 13910629 (Version 1)
Quarter: 2017Q3

REPORT INFORMATION
  Report Type: Spontaneous
  Country: US (occurrence: US)
  Receive Date: 20170826
  Receipt Date: 20170826
  Transmission Date: 20171127
  Serious: Yes (Life-Threatening, Hospitalization, Disabling)
  Sender: FDA-Public Use
  Company Number: None

PATIENT
  Sex: Female
  Weight: 67.5 kg

DRUGS (1)
  1. ACTEMRA [Suspect]
     Active Substance: TOCILIZUMAB
     Indication: RHEUMATOID ARTHRITIS
     Route: 042

REACTIONS (14)
  - White blood cell count decreased [None]
  - Seizure [None]
  - Kidney infection [None]
  - Cognitive disorder [None]
  - Urinary tract infection [None]
  - Hypoaesthesia [None]
  - Drug dose omission [None]
  - Tremor [None]
  - Paraesthesia [None]
  - Hypertension [None]
  - Palpitations [None]
  - Chest pain [None]
  - Malaise [None]
  - Infection [None]

NARRATIVE: CASE EVENT DATE: 20170501
